FAERS Safety Report 6852872-9 (Version None)
Quarter: 2010Q3

REPORT INFORMATION
  Report Type: 
  Country: None (occurrence: None)
  Receive Date: 20100717
  Receipt Date: 20071120
  Transmission Date: 20110219
  Serious: No
  Sender: FDA-Public Use
  Company Number: US-PFIZER INC-2007100427

PATIENT
  Sex: Male
  Weight: 65.9 kg

DRUGS (7)
  1. CHANTIX [Suspect]
     Indication: SMOKING CESSATION THERAPY
     Dates: start: 20070101
  2. VERAPAMIL [Concomitant]
  3. ENALAPRIL MALEATE [Concomitant]
  4. ALISKIREN [Concomitant]
  5. VYTORIN [Concomitant]
  6. VITAMINS [Concomitant]
  7. ACETYLSALICYLIC ACID [Concomitant]

REACTIONS (1)
  - DYSGEUSIA [None]
